FAERS Safety Report 13553969 (Version 2)
Quarter: 2017Q3

REPORT INFORMATION
  Report Type: Spontaneous
  Country: US (occurrence: US)
  Receive Date: 20170517
  Receipt Date: 20170714
  Transmission Date: 20171127
  Serious: Yes (Hospitalization, Other)
  Sender: FDA-Public Use
  Company Number: US-GLAXOSMITHKLINE-US2017GSK072472

PATIENT
  Age: 79 Year
  Sex: Female

DRUGS (2)
  1. ADVAIR DISKUS [Suspect]
     Active Substance: FLUTICASONE PROPIONATE\SALMETEROL XINAFOATE
     Indication: ASTHMA
     Dosage: UNK
     Dates: start: 2007
  2. SPIRIVA [Suspect]
     Active Substance: TIOTROPIUM BROMIDE MONOHYDRATE
     Indication: PRODUCT USED FOR UNKNOWN INDICATION
     Dosage: UNK
     Dates: start: 201612

REACTIONS (12)
  - Pharyngeal oedema [Unknown]
  - Diagnostic procedure [Unknown]
  - Candida infection [Unknown]
  - Dysphonia [Unknown]
  - Pneumonia [Unknown]
  - Feeding disorder [Unknown]
  - Malaise [Unknown]
  - Cough [Unknown]
  - Glossodynia [Unknown]
  - Drug intolerance [Unknown]
  - Ill-defined disorder [Unknown]
  - Weight decreased [Unknown]

NARRATIVE: CASE EVENT DATE: 20161128
